FAERS Safety Report 7798357-7 (Version None)
Quarter: 2011Q4

REPORT INFORMATION
  Report Type: 
  Country: None (occurrence: None)
  Receive Date: 20111005
  Receipt Date: 20110930
  Transmission Date: 20120403
  Serious: Yes (Hospitalization, Other)
  Sender: FDA-Public Use
  Company Number: US-ABBOTT-11P-163-0860234-00

PATIENT
  Sex: Male
  Weight: 78.088 kg

DRUGS (9)
  1. PRISTIQ [Concomitant]
     Indication: PRODUCT USED FOR UNKNOWN INDICATION
  2. CENTRUM SILVER [Concomitant]
     Indication: PRODUCT USED FOR UNKNOWN INDICATION
  3. LEVOTHYROXINE [Concomitant]
     Indication: PRODUCT USED FOR UNKNOWN INDICATION
  4. ZINC [Concomitant]
     Indication: PRODUCT USED FOR UNKNOWN INDICATION
  5. TESTIM [Concomitant]
     Indication: PRODUCT USED FOR UNKNOWN INDICATION
  6. KALETRA [Suspect]
     Indication: HIV TEST POSITIVE
     Dates: start: 20110101
  7. IRON [Concomitant]
     Indication: PRODUCT USED FOR UNKNOWN INDICATION
  8. ALFUZOSIN HYDROCHLORIDE [Suspect]
     Indication: BENIGN PROSTATIC HYPERPLASIA
     Dates: start: 20090101, end: 20110901
  9. TRUVADA [Concomitant]
     Indication: HIV TEST POSITIVE

REACTIONS (5)
  - LOSS OF CONSCIOUSNESS [None]
  - PROSTATOMEGALY [None]
  - URINARY RETENTION [None]
  - PRESYNCOPE [None]
  - DRUG INTERACTION [None]
